APPROVED DRUG PRODUCT: CLEOCIN PHOSPHATE
Active Ingredient: CLINDAMYCIN PHOSPHATE
Strength: EQ 150MG BASE/ML
Dosage Form/Route: INJECTABLE;INJECTION
Application: A062803 | Product #001 | TE Code: AP
Applicant: PFIZER INC
Approved: Oct 16, 1987 | RLD: No | RS: No | Type: RX